FAERS Safety Report 10749022 (Version 1)
Quarter: 2015Q1

REPORT INFORMATION
  Report Type: Spontaneous
  Country: US (occurrence: None)
  Receive Date: 20150128
  Receipt Date: 20150128
  Transmission Date: 20150721
  Serious: Yes (Hospitalization, Disabling)
  Sender: FDA-Public Use
  Company Number: None

PATIENT
  Age: 66 Year
  Sex: Female
  Weight: 77.11 kg

DRUGS (1)
  1. FOSAMAX [Suspect]
     Active Substance: ALENDRONATE SODIUM
     Indication: OSTEOPENIA
     Dosage: ONE WEEKLY
     Route: 048

REACTIONS (4)
  - Impaired healing [None]
  - Femur fracture [None]
  - Spinal fracture [None]
  - Foot fracture [None]

NARRATIVE: CASE EVENT DATE: 20140901
